FAERS Safety Report 18022608 (Version 1)
Quarter: 2020Q3

REPORT INFORMATION
  Report Type: Spontaneous
  Country: GB (occurrence: GB)
  Receive Date: 20200714
  Receipt Date: 20200714
  Transmission Date: 20201103
  Serious: Yes (Other)
  Sender: FDA-Public Use
  Company Number: GB-MYLANLABS-2020M1062907

PATIENT
  Age: 72 Year
  Sex: Male
  Weight: 69.85 kg

DRUGS (6)
  1. AMIODARONE [Suspect]
     Active Substance: AMIODARONE
     Indication: PRODUCT USED FOR UNKNOWN INDICATION
     Dosage: 200 MILLIGRAM
     Route: 048
     Dates: start: 20191223, end: 20200615
  2. FUROSEMIDE. [Concomitant]
     Active Substance: FUROSEMIDE
     Dosage: UNK
  3. BISOPROLOL [Concomitant]
     Active Substance: BISOPROLOL
     Dosage: UNK
  4. ATORVASTATIN [Concomitant]
     Active Substance: ATORVASTATIN
     Dosage: UNK
  5. DABIGATRAN [Concomitant]
     Active Substance: DABIGATRAN
     Dosage: UNK
  6. INSULIN [Concomitant]
     Active Substance: INSULIN NOS
     Dosage: UNK

REACTIONS (3)
  - Depression [Unknown]
  - Headache [Unknown]
  - Coordination abnormal [Unknown]
